FAERS Safety Report 9622831 (Version 2)
Quarter: 2013Q4

REPORT INFORMATION
  Report Type: Spontaneous
  Country: US (occurrence: US)
  Receive Date: 20131015
  Receipt Date: 20131015
  Transmission Date: 20140711
  Serious: No
  Sender: FDA-Public Use
  Company Number: US-PURDUE-USA-2012-0087580

PATIENT
  Sex: Male

DRUGS (1)
  1. BUTRANS [Suspect]
     Indication: PRODUCT USED FOR UNKNOWN INDICATION
     Dosage: 20 MCG/HR, UNK
     Route: 062
     Dates: start: 201202

REACTIONS (5)
  - Drug withdrawal syndrome [Unknown]
  - Wrong technique in drug usage process [Unknown]
  - Device leakage [Unknown]
  - Product quality issue [Unknown]
  - Drug ineffective [Unknown]
